FAERS Safety Report 8070322 (Version 2)
Quarter: 2014Q2

REPORT INFORMATION
  Report Type: Spontaneous
  Country: GB (occurrence: GB)
  Receive Date: 20110805
  Receipt Date: 20140602
  Transmission Date: 20141212
  Serious: Yes (Hospitalization, Disabling)
  Sender: FDA-Public Use
  Company Number: GB-RANBAXY-2011R1-46278

PATIENT
  Age: 76 Year
  Sex: Female

DRUGS (2)
  1. CIPROFLOXACIN [Suspect]
     Indication: LOWER RESPIRATORY TRACT INFECTION
     Dosage: UNK
     Route: 065
  2. PREDNISOLONE [Suspect]
     Indication: LOWER RESPIRATORY TRACT INFECTION
     Dosage: UNK
     Route: 065
     Dates: start: 200705

REACTIONS (3)
  - Tendon rupture [Recovered/Resolved with Sequelae]
  - Infective exacerbation of bronchiectasis [Recovered/Resolved]
  - Gastroenteritis viral [Recovered/Resolved]
